FAERS Safety Report 5736575-X (Version None)
Quarter: 2008Q2

REPORT INFORMATION
  Report Type: 
  Country: None (occurrence: None)
  Receive Date: 20080513
  Receipt Date: 20080430
  Transmission Date: 20081010
  Serious: Yes (Death)
  Sender: FDA-Public Use
  Company Number: US-TYCO HEALTHCARE/MALLINCKRODT-T200701249

PATIENT

DRUGS (7)
  1. MORPHINE SULFATE [Suspect]
     Indication: DRUG USE FOR UNKNOWN INDICATION
     Dosage: 2 MG, SINGLE
     Route: 042
     Dates: start: 20071001, end: 20071001
  2. CEP-701 [Suspect]
     Indication: ACUTE MYELOID LEUKAEMIA
     Dosage: 80 MG, BID
     Route: 048
     Dates: start: 20070907, end: 20070930
  3. CYTARABINE [Suspect]
     Indication: ACUTE MYELOID LEUKAEMIA
     Dates: start: 20070907
  4. LOTREL                             /01289101/ [Concomitant]
  5. LANTUS [Concomitant]
  6. MULTIVITAMIN                       /00831701/ [Concomitant]
  7. ASPIRIN [Concomitant]
     Dosage: UNK, UNK

REACTIONS (4)
  - APNOEA [None]
  - HYPOTENSION [None]
  - PULSE ABSENT [None]
  - UNRESPONSIVE TO STIMULI [None]
